FAERS Safety Report 24310671 (Version 2)
Quarter: 2024Q3

REPORT INFORMATION
  Report Type: Report from Study
  Country: BR (occurrence: BR)
  Receive Date: 20240912
  Receipt Date: 20240925
  Transmission Date: 20241016
  Serious: Yes (Other)
  Sender: TAKEDA
  Company Number: BR-TAKEDA-2024TUS090054

PATIENT
  Age: 46 Year
  Sex: Female

DRUGS (1)
  1. VEDOLIZUMAB [Suspect]
     Active Substance: VEDOLIZUMAB
     Indication: Colitis ulcerative
     Dosage: 300 MILLIGRAM
     Route: 065
     Dates: start: 202204, end: 202405

REACTIONS (5)
  - Haematochezia [Not Recovered/Not Resolved]
  - Drug ineffective [Unknown]
  - Weight decreased [Recovered/Resolved]
  - Frequent bowel movements [Unknown]
  - Decreased appetite [Recovered/Resolved]

NARRATIVE: CASE EVENT DATE: 20240501
